FAERS Safety Report 5492911-3 (Version None)
Quarter: 2007Q4

REPORT INFORMATION
  Report Type: 
  Country: None (occurrence: None)
  Receive Date: 20071023
  Receipt Date: 20071009
  Transmission Date: 20080405
  Serious: Yes (Hospitalization)
  Sender: FDA-Public Use
  Company Number: US-AMGEN-US239893

PATIENT
  Sex: Female
  Weight: 77 kg

DRUGS (9)
  1. PROCRIT [Suspect]
     Indication: ANAEMIA
     Route: 058
     Dates: start: 20070730
  2. PEG-INTRON [Suspect]
     Indication: HEPATITIS C
     Route: 058
     Dates: start: 20070720
  3. REBETOL [Suspect]
     Indication: HEPATITIS C
     Route: 048
     Dates: start: 20070721
  4. CIPRO [Concomitant]
     Dates: start: 20070730
  5. LEXAPRO [Concomitant]
     Dates: start: 20070730
  6. FERROUS SULFATE TAB [Concomitant]
     Dates: start: 20070720
  7. SPIRONOLACTONE [Concomitant]
  8. VITAMIN CAP [Concomitant]
  9. SYNTHROID [Concomitant]

REACTIONS (1)
  - ABDOMINAL PAIN [None]
